FAERS Safety Report 4381240-7 (Version None)
Quarter: 2004Q2

REPORT INFORMATION
  Report Type: 
  Country: None (occurrence: None)
  Receive Date: 20040616
  Receipt Date: 20040527
  Transmission Date: 20050107
  Serious: Yes (Death)
  Sender: FDA-Public Use
  Company Number: USA040568810

PATIENT
  Age: 70 Year

DRUGS (1)
  1. ZYPREXA [Suspect]

REACTIONS (1)
  - CEREBROVASCULAR ACCIDENT [None]
